FAERS Safety Report 8046095 (Version 13)
Quarter: 2013Q1

REPORT INFORMATION
  Report Type: Spontaneous
  Country: US (occurrence: US)
  Receive Date: 20110720
  Receipt Date: 20130122
  Transmission Date: 20140127
  Serious: Yes (Hospitalization, Congenital Anomaly, Other)
  Sender: FDA-Public Use
  Company Number: US-PFIZER INC-2011105760

PATIENT
  Sex: Female
  Weight: 2.3 kg

DRUGS (20)
  1. ZOLOFT [Suspect]
     Indication: EMOTIONAL DISTRESS
     Dosage: 50 MG, 1X/DAY (ONE EVERY DAY)
     Route: 064
     Dates: start: 1988, end: 2010
  2. LANOXIN [Concomitant]
     Indication: ATRIAL FIBRILLATION
     Dosage: 0.25 MG, 1X/DAY
     Route: 064
  3. TYLENOL [Concomitant]
     Indication: PAIN
     Dosage: 325 MG, 2X/DAY
     Route: 064
  4. TYLENOL [Concomitant]
     Dosage: UNK, EVERY NIGHT
     Route: 064
     Dates: start: 20030415
  5. AMBIEN [Concomitant]
     Dosage: 10 MG, AS NEEDED
     Route: 064
  6. LOPRESSOR [Concomitant]
     Dosage: 625 MG, EVERY 6 HOURS
     Route: 064
  7. NORPACE [Concomitant]
     Dosage: 100 MG, 2X/DAY
     Route: 064
  8. PRENATAL VITAMINS [Concomitant]
     Dosage: ONE TABLET DAILY
     Route: 064
  9. VIOXX [Concomitant]
     Dosage: 50 MG ONCE EVERY DAY
     Route: 064
     Dates: start: 20030415
  10. DIGOXIN [Concomitant]
     Dosage: 0.5 MG A DAY
     Route: 064
  11. ACETYLSALICYLIC ACID [Concomitant]
     Dosage: UNK, ONCE A DAY
     Route: 064
  12. DIGITEK [Concomitant]
     Dosage: UNK
     Route: 064
  13. FLECAINIDE [Concomitant]
     Dosage: UNK
     Route: 064
  14. ROBITUSSIN [Concomitant]
     Dosage: UNK
     Route: 064
  15. MACROBID [Concomitant]
     Dosage: UNK
     Route: 064
  16. ZITHROMAX [Concomitant]
     Dosage: UNK
     Route: 064
  17. BABY ASPIRIN [Concomitant]
     Dosage: UNK
     Route: 064
  18. CIPRO [Concomitant]
     Dosage: UNK
     Route: 064
  19. TAMBOCOR [Concomitant]
     Dosage: UNK
     Route: 064
  20. SEASONALE [Concomitant]
     Indication: CONTRACEPTION
     Dosage: UNK
     Route: 064

REACTIONS (8)
  - Foetal exposure during pregnancy [Unknown]
  - Cleft lip and palate [Recovering/Resolving]
  - Developmental hip dysplasia [Unknown]
  - Otitis media [Unknown]
  - Atrial septal defect [Unknown]
  - Ovarian cyst [Unknown]
  - Poor weight gain neonatal [Unknown]
  - Congenital anomaly [Unknown]
